FAERS Safety Report 6003966-1 (Version None)
Quarter: 2008Q4

REPORT INFORMATION
  Report Type: 
  Country: None (occurrence: None)
  Receive Date: 20081216
  Receipt Date: 20080219
  Transmission Date: 20090506
  Serious: Yes (Life-Threatening, Hospitalization)
  Sender: FDA-Public Use
  Company Number: ES-ASTRAZENECA-2008AC00483

PATIENT
  Age: 43 Year
  Sex: Female

DRUGS (5)
  1. SEROQUEL [Suspect]
     Indication: HUNTINGTON'S CHOREA
     Route: 048
     Dates: start: 20071201, end: 20080120
  2. ZYPREXA [Interacting]
     Indication: HUNTINGTON'S CHOREA
     Dosage: 5MG, 28 MG ORODISPERSIBLE TABLETS
     Route: 048
     Dates: start: 20070101
  3. KEPPRA [Interacting]
     Indication: HUNTINGTON'S CHOREA
     Route: 048
     Dates: start: 20070101
  4. DEPPRAX [Interacting]
     Indication: HUNTINGTON'S CHOREA
     Route: 048
     Dates: start: 20070101
  5. IDALPREM [Concomitant]
     Indication: HUNTINGTON'S CHOREA
     Route: 048
     Dates: start: 20071201, end: 20080120

REACTIONS (2)
  - DRUG INTERACTION [None]
  - NEUROLEPTIC MALIGNANT SYNDROME [None]
